FAERS Safety Report 24614919 (Version 3)
Quarter: 2025Q3

REPORT INFORMATION
  Report Type: Spontaneous
  Country: MY (occurrence: MY)
  Receive Date: 20241113
  Receipt Date: 20250809
  Transmission Date: 20251020
  Serious: Yes (Other)
  Sender: ALEXION PHARMACEUTICALS
  Company Number: MY-ASTRAZENECA-202410ASI021707MY

PATIENT
  Age: 54 Year
  Sex: Female
  Weight: 47 kg

DRUGS (8)
  1. FASLODEX [Suspect]
     Active Substance: FULVESTRANT
     Indication: Lymphadenopathy
     Route: 065
  2. FASLODEX [Suspect]
     Active Substance: FULVESTRANT
  3. TAMOXIFEN CITRATE [Suspect]
     Active Substance: TAMOXIFEN CITRATE
     Route: 065
  4. ABEMACICLIB [Suspect]
     Active Substance: ABEMACICLIB
     Indication: Lymphadenopathy
     Route: 065
  5. TRASTUZUMAB [Suspect]
     Active Substance: TRASTUZUMAB
     Route: 065
  6. LEUPROLIDE ACETATE [Suspect]
     Active Substance: LEUPROLIDE ACETATE
     Route: 065
  7. LETROZOLE [Suspect]
     Active Substance: LETROZOLE
     Route: 065
  8. RIBOCICLIB [Suspect]
     Active Substance: RIBOCICLIB

REACTIONS (3)
  - Metastases to central nervous system [Unknown]
  - Metastases to bone [Unknown]
  - Metastases to lymph nodes [Unknown]

NARRATIVE: CASE EVENT DATE: 20210101
